FAERS Safety Report 10064167 (Version 2)
Quarter: 2014Q2

REPORT INFORMATION
  Report Type: Spontaneous
  Country: US (occurrence: US)
  Receive Date: 20140408
  Receipt Date: 20140428
  Transmission Date: 20141212
  Serious: Yes (Hospitalization, Other)
  Sender: FDA-Public Use
  Company Number: US-CELGENEUS-163-22393-14040090

PATIENT
  Age: 65 Year
  Sex: Male

DRUGS (2)
  1. ISTODAX [Suspect]
     Indication: ANAPLASTIC LARGE-CELL LYMPHOMA
     Route: 041
     Dates: start: 20140305, end: 20140325
  2. STEROID [Concomitant]
     Indication: PRODUCT USED FOR UNKNOWN INDICATION

REACTIONS (3)
  - Atrial fibrillation [Recovered/Resolved]
  - Electrolyte imbalance [Recovered/Resolved]
  - Blood glucose increased [Recovered/Resolved]
